FAERS Safety Report 20240156 (Version 1)
Quarter: 2021Q4

REPORT INFORMATION
  Report Type: Spontaneous
  Country: JP (occurrence: JP)
  Receive Date: 20211228
  Receipt Date: 20211228
  Transmission Date: 20220303
  Serious: Yes (Hospitalization)
  Sender: FDA-Public Use
  Company Number: JP-MYLANLABS-2021M1096767

PATIENT
  Age: 92 Year
  Sex: Female

DRUGS (5)
  1. SIMVASTATIN [Interacting]
     Active Substance: SIMVASTATIN
     Indication: Hyperlipidaemia
     Route: 048
  2. AZELNIDIPINE [Interacting]
     Active Substance: AZELNIDIPINE
     Indication: Hypertension
     Route: 048
  3. FAMOTIDINE [Concomitant]
     Active Substance: FAMOTIDINE
     Indication: Chronic gastritis
     Route: 048
  4. IRSOGLADINE MALEATE [Concomitant]
     Active Substance: IRSOGLADINE MALEATE
     Indication: Chronic gastritis
     Route: 048
  5. MOSAPRIDE CITRATE [Concomitant]
     Active Substance: MOSAPRIDE CITRATE
     Indication: Chronic gastritis
     Route: 048

REACTIONS (2)
  - Atrioventricular block complete [Recovered/Resolved]
  - Drug interaction [Recovered/Resolved]
